FAERS Safety Report 7705370-4 (Version None)
Quarter: 2011Q3

REPORT INFORMATION
  Report Type: 
  Country: None (occurrence: None)
  Receive Date: 20110824
  Receipt Date: 20110817
  Transmission Date: 20111222
  Serious: Yes (Other)
  Sender: FDA-Public Use
  Company Number: US-JNJFOC-20110607335

PATIENT
  Sex: Female

DRUGS (2)
  1. LEVAQUIN [Suspect]
     Route: 065
     Dates: start: 20090301
  2. LEVAQUIN [Suspect]
     Indication: PRODUCT USED FOR UNKNOWN INDICATION
     Route: 065
     Dates: start: 20090501

REACTIONS (2)
  - TENOSYNOVITIS [None]
  - ROTATOR CUFF SYNDROME [None]
